FAERS Safety Report 17685482 (Version 1)
Quarter: 2020Q2

REPORT INFORMATION
  Report Type: Spontaneous
  Country: FR (occurrence: FR)
  Receive Date: 20200420
  Receipt Date: 20200420
  Transmission Date: 20200714
  Serious: Yes (Life-Threatening)
  Sender: FDA-Public Use
  Company Number: FR-TEVA-2020-FR-1225335

PATIENT
  Age: 18 Year
  Sex: Male

DRUGS (1)
  1. IBUPROFEN. [Suspect]
     Active Substance: IBUPROFEN
     Indication: VIRAL PHARYNGITIS
     Dosage: UNSPECIFIED
     Route: 048
     Dates: start: 20170115, end: 20170119

REACTIONS (1)
  - Lemierre syndrome [Recovering/Resolving]

NARRATIVE: CASE EVENT DATE: 20170117
